FAERS Safety Report 25876600 (Version 1)
Quarter: 2025Q4

REPORT INFORMATION
  Report Type: Spontaneous
  Country: US (occurrence: US)
  Receive Date: 20251003
  Receipt Date: 20251003
  Transmission Date: 20260117
  Serious: Yes (Hospitalization)
  Sender: ROCHE
  Company Number: US-ROCHE-10000398674

PATIENT
  Age: 43 Year
  Sex: Male

DRUGS (3)
  1. RITUXAN [Suspect]
     Active Substance: RITUXIMAB
     Indication: Rheumatoid arthritis
     Dosage: AT WEEKS 0 AND 2, EVERY 16 WEEKS.
     Route: 042
     Dates: start: 202402
  2. ORENITRAM [Concomitant]
     Active Substance: TREPROSTINIL
     Dosage: TAKING 1-2.5MG +2-0.25MG TABLETS
  3. OFEV [Concomitant]
     Active Substance: NINTEDANIB

REACTIONS (1)
  - Cardiac flutter [Unknown]

NARRATIVE: CASE EVENT DATE: 20250918
